FAERS Safety Report 7608969-9 (Version None)
Quarter: 2011Q3

REPORT INFORMATION
  Report Type: 
  Country: None (occurrence: None)
  Receive Date: 20110714
  Receipt Date: 20110704
  Transmission Date: 20111222
  Serious: Yes (Other)
  Sender: FDA-Public Use
  Company Number: FR-GLAXOSMITHKLINE-B0726488A

PATIENT
  Sex: Female

DRUGS (1)
  1. VENTOLIN [Suspect]
     Indication: OFF LABEL USE
     Route: 061
     Dates: start: 20110610, end: 20110610

REACTIONS (7)
  - SOFT TISSUE INJURY [None]
  - LOCALISED OEDEMA [None]
  - BURNS SECOND DEGREE [None]
  - PAIN [None]
  - NECROSIS [None]
  - INCORRECT ROUTE OF DRUG ADMINISTRATION [None]
  - OFF LABEL USE [None]
